FAERS Safety Report 7575076-3 (Version None)
Quarter: 2011Q2

REPORT INFORMATION
  Report Type: 
  Country: None (occurrence: None)
  Receive Date: 20110627
  Receipt Date: 20110621
  Transmission Date: 20111010
  Serious: Yes (Death, Other)
  Sender: FDA-Public Use
  Company Number: PHFR2011GB03825

PATIENT
  Age: 4 Month
  Sex: Female

DRUGS (8)
  1. CAMPATH [Suspect]
     Indication: BONE MARROW TRANSPLANT
  2. FLUDARA [Suspect]
     Indication: BONE MARROW TRANSPLANT
  3. CAMPATH [Suspect]
     Indication: BONE MARROW CONDITIONING REGIMEN
     Dosage: UNK UKN, UNK
     Dates: start: 20070822, end: 20070826
  4. CYCLOSPORINE [Suspect]
     Indication: BONE MARROW TRANSPLANT
  5. TREOSULFAN [Suspect]
     Indication: BONE MARROW CONDITIONING REGIMEN
     Dosage: UNK UKN, UNK
     Dates: start: 20070824, end: 20070826
  6. TREOSULFAN [Suspect]
     Indication: BONE MARROW TRANSPLANT
  7. CYCLOSPORINE [Suspect]
     Indication: BONE MARROW CONDITIONING REGIMEN
     Dosage: UNK UKN, UNK
     Dates: start: 20070822
  8. FLUDARA [Suspect]
     Indication: BONE MARROW CONDITIONING REGIMEN
     Dosage: 30 MG/M2, QD
     Route: 042
     Dates: start: 20070824, end: 20070828

REACTIONS (4)
  - CONVULSION [None]
  - NERVOUS SYSTEM DISORDER [None]
  - POSTURE ABNORMAL [None]
  - GRAFT VERSUS HOST DISEASE [None]
